FAERS Safety Report 6162115-X (Version None)
Quarter: 2009Q2

REPORT INFORMATION
  Report Type: 
  Country: None (occurrence: None)
  Receive Date: 20090417
  Receipt Date: 20090417
  Transmission Date: 20091009
  Serious: Yes (Hospitalization)
  Sender: FDA-Public Use
  Company Number: None

PATIENT
  Sex: Female
  Weight: 65.45 kg

DRUGS (3)
  1. CARBOPLATIN [Suspect]
     Dosage: 1265 MG
  2. ERBITUX [Suspect]
     Dosage: 2788 MG
  3. TAXOL [Suspect]
     Dosage: 380 MG

REACTIONS (6)
  - HAEMOGLOBIN DECREASED [None]
  - HERPES ZOSTER [None]
  - LUNG INFILTRATION [None]
  - MUSCULOSKELETAL CHEST PAIN [None]
  - PLEURAL EFFUSION [None]
  - URINARY TRACT INFECTION [None]
